FAERS Safety Report 12067260 (Version 1)
Quarter: 2016Q1

REPORT INFORMATION
  Report Type: Spontaneous
  Country: US (occurrence: US)
  Receive Date: 20160211
  Receipt Date: 20160211
  Transmission Date: 20160526
  Serious: No
  Sender: FDA-Public Use
  Company Number: US-ACTAVIS-2015-11087

PATIENT
  Age: 73 Year
  Sex: Female

DRUGS (1)
  1. PERMETHRIN (AMALLC) [Suspect]
     Active Substance: PERMETHRIN
     Indication: ACARODERMATITIS
     Dosage: UNK, BID
     Route: 061
     Dates: start: 201503, end: 201503

REACTIONS (5)
  - Onychalgia [Not Recovered/Not Resolved]
  - Off label use [Unknown]
  - Nail bed disorder [Not Recovered/Not Resolved]
  - Skin exfoliation [Not Recovered/Not Resolved]
  - Pain [Not Recovered/Not Resolved]

NARRATIVE: CASE EVENT DATE: 201503
